FAERS Safety Report 11596197 (Version 2)
Quarter: 2015Q4

REPORT INFORMATION
  Report Type: Spontaneous
  Country: US (occurrence: US)
  Receive Date: 20151006
  Receipt Date: 20151110
  Transmission Date: 20160304
  Serious: No
  Sender: FDA-Public Use
  Company Number: US-PFIZER INC-2015321318

PATIENT
  Age: 51 Year
  Sex: Female
  Weight: 75 kg

DRUGS (1)
  1. GABAPENTIN. [Suspect]
     Active Substance: GABAPENTIN
     Indication: BURNING SENSATION
     Dosage: 600 MG, 3X/DAY
     Route: 048
     Dates: start: 201410

REACTIONS (1)
  - Drug ineffective for unapproved indication [Unknown]
